FAERS Safety Report 20425608 (Version 1)
Quarter: 2022Q1

REPORT INFORMATION
  Report Type: Report from Study
  Country: CA (occurrence: CA)
  Receive Date: 20220204
  Receipt Date: 20220204
  Transmission Date: 20220423
  Serious: No
  Sender: FDA-Public Use
  Company Number: CA-EXELIXIS-CABO-21039390

PATIENT
  Sex: Male

DRUGS (6)
  1. CABOMETYX [Suspect]
     Active Substance: CABOZANTINIB S-MALATE
     Indication: Renal cell carcinoma
     Dosage: 60 MG, QD
     Route: 048
     Dates: start: 20210319
  2. FOLIC ACID [Concomitant]
     Active Substance: FOLIC ACID
  3. CANDESARTAN [Concomitant]
     Active Substance: CANDESARTAN
  4. ESOMEPRAZOLE [Concomitant]
     Active Substance: ESOMEPRAZOLE
  5. METOCLOPRAMIDE [Concomitant]
     Active Substance: METOCLOPRAMIDE
  6. LEVETIRACETAM [Concomitant]
     Active Substance: LEVETIRACETAM

REACTIONS (6)
  - Blood urine present [Unknown]
  - Hernia pain [Unknown]
  - Oesophageal pain [Unknown]
  - Illness [Unknown]
  - Haematochezia [Unknown]
  - Fatigue [Unknown]
